FAERS Safety Report 8890820 (Version 1)
Quarter: 2012Q4

REPORT INFORMATION
  Report Type: 
  Country: US (occurrence: US)
  Receive Date: 20121106
  Receipt Date: 20121106
  Transmission Date: 20130627
  Serious: No
  Sender: FDA-Public Use
  Company Number: US-PFIZER INC-2012277280

PATIENT
  Age: 63 Year
  Sex: Female
  Weight: 67.57 kg

DRUGS (3)
  1. LYRICA [Suspect]
     Indication: NEUROPATHY PERIPHERAL
     Dosage: 100 mg, 2x/day
     Dates: start: 201203, end: 2012
  2. LYRICA [Suspect]
     Dosage: 100 mg, Daily
     Dates: start: 2012, end: 201210
  3. LEVODOPA-CARBIDOPA [Concomitant]
     Dosage: 10-100 mg

REACTIONS (2)
  - Fatigue [Recovered/Resolved]
  - Neuropathy peripheral [Unknown]
